FAERS Safety Report 8833893 (Version 2)
Quarter: 2012Q4

REPORT INFORMATION
  Report Type: 
  Country: US (occurrence: US)
  Receive Date: 20121011
  Receipt Date: 20121101
  Transmission Date: 20130627
  Serious: Yes (Hospitalization)
  Sender: FDA-Public Use
  Company Number: US-BRISTOL-MYERS SQUIBB COMPANY-17011941

PATIENT
  Age: 60 Year
  Sex: Female

DRUGS (3)
  1. ABILIFY TABS 2 MG [Suspect]
     Indication: PSYCHOTIC DISORDER
     Dates: start: 2010
  2. CITALOPRAM [Concomitant]
  3. CLONIDINE [Concomitant]
     Dosage: Patch

REACTIONS (3)
  - Cerebrovascular accident [Unknown]
  - Cellulitis [Unknown]
  - Wrong technique in drug usage process [Unknown]
